FAERS Safety Report 4888126-X (Version None)
Quarter: 2006Q1

REPORT INFORMATION
  Report Type: 
  Country: None (occurrence: None)
  Receive Date: 20060123
  Receipt Date: 20060109
  Transmission Date: 20060701
  Serious: Yes (Hospitalization, Congenital Anomaly, Other)
  Sender: FDA-Public Use
  Company Number: US-MERCK-0601USA01188

PATIENT
  Age: 59 Year
  Sex: Female

DRUGS (9)
  1. VIOXX [Suspect]
     Indication: PAIN
     Route: 065
     Dates: start: 19991201, end: 20000601
  2. IBUPROFEN [Concomitant]
     Route: 065
  3. VICODIN [Concomitant]
     Route: 065
  4. METOPROLOL [Concomitant]
     Route: 065
  5. QUININE [Concomitant]
     Route: 065
  6. PREMARIN [Concomitant]
     Route: 065
  7. LASIX [Concomitant]
     Route: 065
  8. FLEXERIL [Concomitant]
     Route: 065
  9. [THERAPY UNSPECIFIED] [Concomitant]
     Route: 065

REACTIONS (13)
  - CATARACT [None]
  - CEREBROVASCULAR ACCIDENT [None]
  - DIVERTICULITIS [None]
  - DIVERTICULUM [None]
  - DYSARTHRIA [None]
  - GASTRITIS [None]
  - HAEMORRHOIDS [None]
  - HEMIPARESIS [None]
  - INFLAMMATORY BOWEL DISEASE [None]
  - LUNG NEOPLASM MALIGNANT [None]
  - PULMONARY MASS [None]
  - RECTAL HAEMORRHAGE [None]
  - WEIGHT DECREASED [None]
